FAERS Safety Report 10598306 (Version 2)
Quarter: 2014Q4

REPORT INFORMATION
  Report Type: Report from Study
  Country: US (occurrence: US)
  Receive Date: 20141121
  Receipt Date: 20141121
  Transmission Date: 20150529
  Serious: Yes (Hospitalization)
  Sender: FDA-Public Use
  Company Number: US-SA-2014SA029987

PATIENT
  Age: 57 Year
  Sex: Female

DRUGS (1)
  1. AUBAGIO [Suspect]
     Active Substance: TERIFLUNOMIDE
     Indication: MULTIPLE SCLEROSIS
     Route: 048
     Dates: start: 20140216, end: 20141101

REACTIONS (6)
  - Multiple sclerosis relapse [Unknown]
  - Dehydration [Unknown]
  - Diarrhoea [Unknown]
  - Weight decreased [Unknown]
  - Fall [Unknown]
  - Fatigue [Recovered/Resolved]
